FAERS Safety Report 15370246 (Version 1)
Quarter: 2018Q3

REPORT INFORMATION
  Report Type: Spontaneous
  Country: US (occurrence: US)
  Receive Date: 20180904
  Receipt Date: 20180904
  Transmission Date: 20181010
  Serious: No
  Sender: FDA-Public Use
  Company Number: None

PATIENT

DRUGS (1)
  1. PARAGARD T 380A [Suspect]
     Active Substance: COPPER
     Indication: CONTRACEPTION
     Dosage: ?          OTHER FREQUENCY:EVERY 10 YEARS;?
     Route: 015
     Dates: start: 20130327, end: 20170420

REACTIONS (1)
  - Complication of device removal [None]

NARRATIVE: CASE EVENT DATE: 20170420
